FAERS Safety Report 7251459 (Version 4)
Quarter: 2013Q4

REPORT INFORMATION
  Report Type: Spontaneous
  Country: US (occurrence: US)
  Receive Date: 20100121
  Receipt Date: 20131212
  Transmission Date: 20140711
  Serious: Yes (Hospitalization)
  Sender: FDA-Public Use
  Company Number: US-BAYER-201011511NA

PATIENT
  Age: 38 Year
  Sex: Female
  Weight: 70.3 kg

DRUGS (4)
  1. YASMIN [Suspect]
     Indication: PREMENSTRUAL SYNDROME
     Dosage: UNK
     Route: 048
     Dates: start: 2006, end: 20080115
  2. IBUPROFEN [Concomitant]
  3. SARAFEM [Concomitant]
     Dosage: 20 MG, QD
  4. ALLEGRA [Concomitant]

REACTIONS (2)
  - Deep vein thrombosis [None]
  - Thrombosis [None]
